FAERS Safety Report 8044312-1 (Version None)
Quarter: 2012Q1

REPORT INFORMATION
  Report Type: 
  Country: None (occurrence: None)
  Receive Date: 20120111
  Receipt Date: 20120111
  Transmission Date: 20120608
  Serious: No
  Sender: FDA-Public Use
  Company Number: None

PATIENT
  Age: 45 Year
  Sex: Male
  Weight: 108.6 kg

DRUGS (1)
  1. DIVALPROEX SODIUM [Suspect]
     Indication: SCHIZOAFFECTIVE DISORDER
     Dosage: 2000 MG HS PO
     Route: 048
     Dates: start: 20101215, end: 20120105

REACTIONS (5)
  - LETHARGY [None]
  - ENCEPHALOPATHY [None]
  - SOMNOLENCE [None]
  - CONFUSIONAL STATE [None]
  - HYPERAMMONAEMIA [None]
